FAERS Safety Report 23292357 (Version 3)
Quarter: 2024Q1

REPORT INFORMATION
  Report Type: Report from Study
  Country: US (occurrence: US)
  Receive Date: 20231213
  Receipt Date: 20240328
  Transmission Date: 20240409
  Serious: Yes (Hospitalization, Other)
  Sender: FDA-Public Use
  Company Number: US-ARGENX-2023-ARGX-US000570

PATIENT

DRUGS (5)
  1. VYVGART [Suspect]
     Active Substance: EFGARTIGIMOD ALFA-FCAB
     Indication: Myasthenia gravis
     Dosage: 10 MG/KG
     Route: 042
     Dates: start: 20220929
  2. VYVGART [Suspect]
     Active Substance: EFGARTIGIMOD ALFA-FCAB
     Dosage: UNK
     Route: 042
     Dates: start: 20230221
  3. VYVGART [Suspect]
     Active Substance: EFGARTIGIMOD ALFA-FCAB
     Dosage: UNK
     Route: 042
     Dates: start: 20230706
  4. PREDNISONE [Suspect]
     Active Substance: PREDNISONE
     Indication: Product used for unknown indication
     Dosage: UNK
     Route: 065
  5. CELLCEPT [Suspect]
     Active Substance: MYCOPHENOLATE MOFETIL
     Indication: Product used for unknown indication
     Dosage: UNK
     Route: 065

REACTIONS (23)
  - Asthenia [Unknown]
  - Myasthenia gravis [Unknown]
  - Renal cyst [Unknown]
  - Gallbladder disorder [Unknown]
  - Myasthenia gravis [Not Recovered/Not Resolved]
  - Nephrolithiasis [Unknown]
  - Insomnia [Unknown]
  - Arthralgia [Not Recovered/Not Resolved]
  - Drug interaction [Unknown]
  - Headache [Unknown]
  - Nasopharyngitis [Unknown]
  - Pelvic discomfort [Not Recovered/Not Resolved]
  - Muscle rigidity [Unknown]
  - Inappropriate schedule of product administration [Unknown]
  - Pollakiuria [Unknown]
  - Chest discomfort [Unknown]
  - Eyelid ptosis [Unknown]
  - Pain [Unknown]
  - Myalgia [Unknown]
  - Bacterial infection [Not Recovered/Not Resolved]
  - Fungal infection [Unknown]
  - Fungal infection [Not Recovered/Not Resolved]
  - Urinary tract infection [Unknown]

NARRATIVE: CASE EVENT DATE: 20221001
